FAERS Safety Report 9483432 (Version 1)
Quarter: 2013Q3

REPORT INFORMATION
  Report Type: Spontaneous
  Country: US (occurrence: US)
  Receive Date: 20130828
  Receipt Date: 20130828
  Transmission Date: 20140515
  Serious: Yes (Death, Hospitalization)
  Sender: FDA-Public Use
  Company Number: US-AMGEN-KDL266819

PATIENT
  Age: 64 Year
  Sex: Male

DRUGS (2)
  1. PROCRIT [Suspect]
     Indication: RENAL FAILURE CHRONIC
     Dosage: 10000 IU, QWK
     Route: 065
     Dates: start: 2007
  2. WARFARIN SODIUM [Concomitant]

REACTIONS (5)
  - Death [Fatal]
  - Fall [Unknown]
  - Head injury [Unknown]
  - Subdural haematoma [Unknown]
  - Gait disturbance [Unknown]
